FAERS Safety Report 9172910 (Version 2)
Quarter: 2013Q4

REPORT INFORMATION
  Report Type: Spontaneous
  Country: US (occurrence: US)
  Receive Date: 20120911
  Receipt Date: 20131101
  Transmission Date: 20140711
  Serious: No
  Sender: FDA-Public Use
  Company Number: US-009507513-1209USA003608

PATIENT
  Sex: Female

DRUGS (1)
  1. DR. SCHOLL^S MOLESKIN PLUS PADDING ROLL [Suspect]
     Indication: GENERAL SYMPTOM
     Dosage: UNK, UNKNOWN
     Route: 061

REACTIONS (1)
  - Therapeutic product ineffective [Unknown]
